FAERS Safety Report 5114680-9 (Version None)
Quarter: 2006Q3

REPORT INFORMATION
  Report Type: 
  Country: None (occurrence: None)
  Receive Date: 20060926
  Receipt Date: 20060914
  Transmission Date: 20061208
  Serious: Yes (Death, Other)
  Sender: FDA-Public Use
  Company Number: US-JNJFOC-20041205170

PATIENT
  Sex: Female

DRUGS (12)
  1. REMICADE [Suspect]
     Route: 042
  2. REMICADE [Suspect]
     Indication: RHEUMATOID ARTHRITIS
     Route: 042
  3. AMBIEN [Concomitant]
  4. AMITRIPTYLINE HCL [Concomitant]
  5. CALCIUM GLUCONATE [Concomitant]
  6. FOSAMAX [Concomitant]
  7. LISINOPRIL [Concomitant]
  8. MULTI-VITAMIN [Concomitant]
  9. PREDNISONE TAB [Concomitant]
  10. SYNTHROID [Concomitant]
  11. METHOTREXATE [Concomitant]
  12. PERCOCET [Concomitant]

REACTIONS (5)
  - BILE DUCT OBSTRUCTION [None]
  - ENCEPHALOPATHY [None]
  - JAUNDICE [None]
  - NON-HODGKIN'S LYMPHOMA [None]
  - RESPIRATORY FAILURE [None]
